FAERS Safety Report 21888719 (Version 2)
Quarter: 2023Q1

REPORT INFORMATION
  Report Type: Spontaneous
  Country: US (occurrence: US)
  Receive Date: 20230120
  Receipt Date: 20230201
  Transmission Date: 20230417
  Serious: No
  Sender: FDA-Public Use
  Company Number: US-LUPIN PHARMACEUTICALS INC.-2023-00329

PATIENT

DRUGS (1)
  1. XOPENEX HFA [Suspect]
     Active Substance: LEVALBUTEROL TARTRATE
     Indication: Asthma
     Dosage: 45 MICROGRAM, BID (IN THE MORNING AND IN THE EVENING)

REACTIONS (2)
  - Adverse event [Not Recovered/Not Resolved]
  - Product packaging quantity issue [Unknown]
